FAERS Safety Report 13156597 (Version 1)
Quarter: 2017Q1

REPORT INFORMATION
  Report Type: Spontaneous
  Country: US (occurrence: US)
  Receive Date: 20170126
  Receipt Date: 20170126
  Transmission Date: 20170428
  Serious: No
  Sender: FDA-Public Use
  Company Number: US-PFIZER INC-2017031056

PATIENT
  Sex: Male

DRUGS (1)
  1. LEVOXYL [Suspect]
     Active Substance: LEVOTHYROXINE SODIUM

REACTIONS (3)
  - Weight increased [Unknown]
  - Malaise [Unknown]
  - Product quality issue [Unknown]
